FAERS Safety Report 8955345 (Version 2)
Quarter: 2013Q1

REPORT INFORMATION
  Report Type: Report from Study
  Country: US (occurrence: US)
  Receive Date: 20121207
  Receipt Date: 20130329
  Transmission Date: 20140127
  Serious: Yes (Hospitalization, Other)
  Sender: FDA-Public Use
  Company Number: US-ROCHE-1165738

PATIENT
  Sex: 0

DRUGS (1)
  1. BEVACIZUMAB [Suspect]
     Indication: HEPATIC CANCER
     Route: 042

REACTIONS (3)
  - Clostridium difficile infection [Unknown]
  - Cardiomyopathy [Unknown]
  - Atrial flutter [Unknown]
